FAERS Safety Report 11578020 (Version 13)
Quarter: 2018Q3

REPORT INFORMATION
  Report Type: Report from Study
  Country: BR (occurrence: BR)
  Receive Date: 20150930
  Receipt Date: 20180713
  Transmission Date: 20181010
  Serious: Yes (Hospitalization, Other)
  Sender: FDA-Public Use
  Company Number: PHHY2015BR117194

PATIENT
  Age: 60 Year
  Sex: Female
  Weight: 77 kg

DRUGS (8)
  1. SANDOSTATIN LAR DEPOT [Suspect]
     Active Substance: OCTREOTIDE ACETATE
     Dosage: UNK
     Route: 065
     Dates: start: 201707
  2. HYDROCHLOROTHIAZIDE. [Concomitant]
     Active Substance: HYDROCHLOROTHIAZIDE
     Indication: PRODUCT USED FOR UNKNOWN INDICATION
     Dosage: 1 DF, QD
     Route: 048
  3. SANDOSTATIN LAR DEPOT [Suspect]
     Active Substance: OCTREOTIDE ACETATE
     Indication: ACROMEGALY
     Dosage: UNK
     Route: 065
     Dates: start: 201505
  4. SANDOSTATIN LAR DEPOT [Suspect]
     Active Substance: OCTREOTIDE ACETATE
     Dosage: 40 MG, QMO, (EVERY 28 DAYS)
     Route: 030
     Dates: start: 20150828
  5. SOMATULINE [Suspect]
     Active Substance: LANREOTIDE ACETATE
     Indication: ACROMEGALY
     Route: 065
  6. SANDOSTATIN LAR DEPOT [Suspect]
     Active Substance: OCTREOTIDE ACETATE
     Dosage: UNK
     Route: 065
     Dates: end: 201702
  7. SANDOSTATIN LAR DEPOT [Suspect]
     Active Substance: OCTREOTIDE ACETATE
     Dosage: 40 MG, QMO
     Route: 030
     Dates: start: 2017
  8. CAPTOPRIL. [Concomitant]
     Active Substance: CAPTOPRIL
     Indication: BLOOD PRESSURE INCREASED
     Dosage: 2 DF, QD
     Route: 048

REACTIONS (42)
  - Renal impairment [Unknown]
  - Dysentery [Unknown]
  - Malaise [Unknown]
  - Spinal disorder [Unknown]
  - Bile output increased [Unknown]
  - Vomiting [Unknown]
  - Cold sweat [Recovered/Resolved]
  - Feeling abnormal [Unknown]
  - Eating disorder [Unknown]
  - Peripheral coldness [Not Recovered/Not Resolved]
  - Asthenia [Unknown]
  - Urinary tract infection [Unknown]
  - Neoplasm progression [Unknown]
  - Headache [Not Recovered/Not Resolved]
  - Hyperhidrosis [Unknown]
  - Dysstasia [Unknown]
  - Gait disturbance [Unknown]
  - Limb deformity [Unknown]
  - Nausea [Unknown]
  - Kidney infection [Unknown]
  - Urinary incontinence [Recovered/Resolved]
  - Hernia pain [Not Recovered/Not Resolved]
  - Cold sweat [Not Recovered/Not Resolved]
  - Retching [Unknown]
  - Hernial eventration [Unknown]
  - Tremor [Unknown]
  - Anxiety [Unknown]
  - General physical condition abnormal [Unknown]
  - Cystitis [Recovered/Resolved]
  - Brain injury [Unknown]
  - Syncope [Recovered/Resolved with Sequelae]
  - Feeding disorder [Unknown]
  - Head discomfort [Unknown]
  - Swelling [Unknown]
  - Weight decreased [Unknown]
  - Spinal pain [Not Recovered/Not Resolved]
  - Renal colic [Unknown]
  - Tongue disorder [Unknown]
  - Muscle spasms [Unknown]
  - Alopecia [Unknown]
  - Diarrhoea [Unknown]
  - Dizziness [Not Recovered/Not Resolved]

NARRATIVE: CASE EVENT DATE: 20160218
